FAERS Safety Report 25989469 (Version 1)
Quarter: 2025Q4

REPORT INFORMATION
  Report Type: Spontaneous
  Country: EU (occurrence: None)
  Receive Date: 20251103
  Receipt Date: 20251103
  Transmission Date: 20260117
  Serious: Yes (Hospitalization, Other)
  Sender: ORION
  Company Number: EU-Orion Corporation ORION PHARMA-TREX2025-0167

PATIENT
  Age: 88 Year
  Sex: Female

DRUGS (2)
  1. METHOTREXATE SODIUM [Suspect]
     Active Substance: METHOTREXATE SODIUM
     Indication: Pemphigoid
     Dates: start: 20210809, end: 20220523
  2. METHOTREXATE SODIUM [Suspect]
     Active Substance: METHOTREXATE SODIUM
     Dates: start: 20220727, end: 20221005

REACTIONS (4)
  - Acute kidney injury [Recovered/Resolved]
  - Mouth injury [Recovered/Resolved]
  - Cytopenia [Recovered/Resolved]
  - Product use in unapproved indication [Unknown]

NARRATIVE: CASE EVENT DATE: 20210809
